FAERS Safety Report 8237142-9 (Version None)
Quarter: 2012Q1

REPORT INFORMATION
  Report Type: 
  Country: None (occurrence: None)
  Receive Date: 20120327
  Receipt Date: 20120321
  Transmission Date: 20120608
  Serious: Yes (Death)
  Sender: FDA-Public Use
  Company Number: US-CELGENEUS-163-21880-12032441

PATIENT
  Sex: Male

DRUGS (7)
  1. REVLIMID [Suspect]
     Indication: MANTLE CELL LYMPHOMA
     Dosage: 10 MILLIGRAM
     Route: 048
     Dates: start: 20120220
  2. ALLOPURINOL [Concomitant]
     Route: 065
  3. FLUCONAZOLE [Concomitant]
     Route: 065
  4. PANTOPRAZOLE SODIUM [Concomitant]
     Route: 065
  5. TAMSULOSIN HCL [Concomitant]
     Route: 065
  6. SULFAMETHOXAZOLE AND TRIMETHOPRIM DOUBLE STRENGTH [Concomitant]
     Route: 065
  7. PREDNISONE TAB [Concomitant]
     Route: 065

REACTIONS (1)
  - DEATH [None]
